FAERS Safety Report 25846095 (Version 1)
Quarter: 2025Q3

REPORT INFORMATION
  Report Type: Spontaneous
  Country: EU (occurrence: EU)
  Receive Date: 20250925
  Receipt Date: 20250925
  Transmission Date: 20251021
  Serious: Yes (Other)
  Sender: RANBAXY
  Company Number: EU-SUN PHARMACEUTICAL INDUSTRIES LTD-2025R1-528094

PATIENT
  Age: 72 Year
  Sex: Male

DRUGS (2)
  1. ACECLOFENAC [Suspect]
     Active Substance: ACECLOFENAC
     Indication: Musculoskeletal pain
     Route: 065
  2. DICLOFENAC SODIUM [Suspect]
     Active Substance: DICLOFENAC SODIUM
     Indication: Musculoskeletal pain
     Route: 065

REACTIONS (1)
  - Nephropathy toxic [Unknown]
